FAERS Safety Report 8177265-6 (Version None)
Quarter: 2012Q1

REPORT INFORMATION
  Report Type: 
  Country: None (occurrence: None)
  Receive Date: 20120301
  Receipt Date: 20120227
  Transmission Date: 20120608
  Serious: Yes (Death)
  Sender: FDA-Public Use
  Company Number: JP-ALEXION PHARMACEUTICALS INC.-A201200170

PATIENT
  Age: 64 Year
  Sex: Male

DRUGS (7)
  1. PREDNISOLONE [Concomitant]
     Dosage: 5 MG, BID
     Dates: start: 19990101, end: 20120115
  2. FAMOTIDINE [Concomitant]
     Dosage: 20 MG, BID
  3. ROCALTROL [Concomitant]
     Dosage: 0.25 UG, BID
  4. SOLIRIS [Suspect]
     Indication: PAROXYSMAL NOCTURNAL HAEMOGLOBINURIA
     Dosage: 900 MG, QW
     Route: 042
     Dates: start: 20080101
  5. MIKARDIS [Concomitant]
     Dosage: 40 MG, QD
  6. TRICHLORMETHIAZIDE [Concomitant]
     Dosage: 2 MG, QD
  7. ALINAMIN F [Concomitant]
     Dosage: 25 MG, TID

REACTIONS (2)
  - ACUTE MYOCARDIAL INFARCTION [None]
  - MALAISE [None]
